FAERS Safety Report 8963864 (Version 1)
Quarter: 2012Q4

REPORT INFORMATION
  Report Type: 
  Country: US (occurrence: US)
  Receive Date: 20121214
  Receipt Date: 20121214
  Transmission Date: 20130627
  Serious: No
  Sender: FDA-Public Use
  Company Number: US-PFIZER INC-2012315362

PATIENT
  Age: 61 Year
  Sex: Male
  Weight: 93.42 kg

DRUGS (2)
  1. LYRICA [Suspect]
     Indication: NEUROPATHIC PAIN
     Dosage: 75 mg, 3x/day
     Route: 048
     Dates: start: 201207
  2. GABAPENTIN [Concomitant]
     Dosage: UNK

REACTIONS (4)
  - Depression [Recovered/Resolved]
  - Body height decreased [Unknown]
  - Lethargy [Recovered/Resolved]
  - Fatigue [Recovered/Resolved]
